FAERS Safety Report 12404616 (Version 1)
Quarter: 2016Q2

REPORT INFORMATION
  Report Type: Spontaneous
  Country: US (occurrence: US)
  Receive Date: 20160525
  Receipt Date: 20160525
  Transmission Date: 20160815
  Serious: No
  Sender: FDA-Public Use
  Company Number: ALCN2016US003664

PATIENT
  Sex: Female

DRUGS (2)
  1. SYSTANE LUBRICANT [Suspect]
     Active Substance: POLYETHYLENE GLYCOL 400\PROPYLENE GLYCOL
     Indication: DRY EYE
     Dosage: 1 GTT, QD
     Route: 047
     Dates: start: 20160514, end: 20160514
  2. HOMEOPATHIC EAR PAIN RELIEF [Suspect]
     Active Substance: HOMEOPATHICS
     Dosage: UNK UNK, NO TREATMENT

REACTIONS (2)
  - Circumstance or information capable of leading to medication error [Recovered/Resolved]
  - Product packaging issue [None]

NARRATIVE: CASE EVENT DATE: 20160514
